FAERS Safety Report 6970500-9 (Version None)
Quarter: 2010Q3

REPORT INFORMATION
  Report Type: 
  Country: None (occurrence: None)
  Receive Date: 20100907
  Receipt Date: 20100820
  Transmission Date: 20110219
  Serious: Yes (Hospitalization)
  Sender: FDA-Public Use
  Company Number: 2010AP001794

PATIENT
  Age: 55 Year
  Sex: Male

DRUGS (2)
  1. CITALOPRAM HYDROBROMIDE [Suspect]
     Indication: DEPRESSION
     Dosage: 20 MG; QD PO
     Route: 047
     Dates: start: 20090801, end: 20100816
  2. NAPROXEN [Concomitant]

REACTIONS (4)
  - DIZZINESS [None]
  - DUODENAL ULCER [None]
  - SMALL INTESTINAL HAEMORRHAGE [None]
  - SYNCOPE [None]
